FAERS Safety Report 4417756-4 (Version None)
Quarter: 2004Q2

REPORT INFORMATION
  Report Type: 
  Country: None (occurrence: None)
  Receive Date: 20040621
  Receipt Date: 20040504
  Transmission Date: 20050107
  Serious: Yes (Other)
  Sender: FDA-Public Use
  Company Number: PHEH2004US03650

PATIENT
  Age: 51 Year
  Sex: Female

DRUGS (3)
  1. ZOMETA [Suspect]
     Indication: BREAST CANCER
     Dosage: INTRAVENOUS
     Route: 042
  2. FEMARA [Concomitant]
  3. CELEBREX [Concomitant]

REACTIONS (5)
  - BONE DISORDER [None]
  - IMPAIRED HEALING [None]
  - OSTEONECROSIS [None]
  - PAIN IN JAW [None]
  - TOOTH EXTRACTION [None]
